FAERS Safety Report 5468285-0 (Version None)
Quarter: 2007Q3

REPORT INFORMATION
  Report Type: 
  Country: None (occurrence: None)
  Receive Date: 20070926
  Receipt Date: 20070912
  Transmission Date: 20080115
  Serious: Yes (Life-Threatening, Hospitalization, Other)
  Sender: FDA-Public Use
  Company Number: US-ELI_LILLY_AND_COMPANY-US200709002669

PATIENT
  Age: 55 Year
  Sex: Female
  Weight: 79.5 kg

DRUGS (17)
  1. CYMBALTA [Suspect]
     Indication: NEURALGIA
     Dates: start: 20060212, end: 20060219
  2. LYRICA [Concomitant]
     Indication: NEURALGIA
     Dosage: 150 MG, 2/D
     Dates: start: 20060212, end: 20060219
  3. HUMALOG [Concomitant]
  4. LANTUS [Concomitant]
  5. PREDNISONE [Concomitant]
  6. LOPID [Concomitant]
  7. AVAPRO [Concomitant]
  8. SYNTHROID [Concomitant]
  9. IMDUR [Concomitant]
  10. PRAVACHOL [Concomitant]
  11. ATENOLOL [Concomitant]
  12. METHOTREXATE [Concomitant]
  13. ASPIRIN [Concomitant]
  14. ULTRAM [Concomitant]
  15. NEURONTIN [Concomitant]
  16. EFFEXOR [Concomitant]
  17. LASIX [Concomitant]

REACTIONS (11)
  - BACTERIAL SEPSIS [None]
  - HERPES ZOSTER [None]
  - HYPOTENSION [None]
  - PAIN [None]
  - RASH [None]
  - SKIN EXFOLIATION [None]
  - STEVENS-JOHNSON SYNDROME [None]
  - THROMBOCYTOPENIA [None]
  - TOXIC EPIDERMAL NECROLYSIS [None]
  - VASCULITIS [None]
  - WHITE BLOOD CELL COUNT DECREASED [None]
